FAERS Safety Report 13528794 (Version 2)
Quarter: 2017Q3

REPORT INFORMATION
  Report Type: Report from Study
  Country: ES (occurrence: ES)
  Receive Date: 20170509
  Receipt Date: 20170728
  Transmission Date: 20171127
  Serious: Yes (Hospitalization)
  Sender: FDA-Public Use
  Company Number: ES-PFIZER INC-2017191345

PATIENT
  Age: 70 Year
  Sex: Male
  Weight: 78.5 kg

DRUGS (13)
  1. RITUXIMAB. [Suspect]
     Active Substance: RITUXIMAB
     Indication: DIFFUSE LARGE B-CELL LYMPHOMA
     Dosage: 712.5 MG/M2, CYCLIC (1 IN 21 D)
     Route: 042
     Dates: start: 20170222, end: 20170304
  2. FILGRASTIM [Concomitant]
     Active Substance: FILGRASTIM
     Indication: ANTIBIOTIC PROPHYLAXIS
     Dosage: 300 UG, UNK
     Route: 058
  3. HALOPERIDOL. [Concomitant]
     Active Substance: HALOPERIDOL
     Indication: PROPHYLAXIS
     Dosage: UNK
     Dates: start: 20170228
  4. PREDNISONE. [Suspect]
     Active Substance: PREDNISONE
     Indication: DIFFUSE LARGE B-CELL LYMPHOMA
     Dosage: 100 MG, 1X/DAY
     Route: 048
  5. OMEPRAZOLE. [Concomitant]
     Active Substance: OMEPRAZOLE
     Indication: PROPHYLAXIS
     Dosage: 40 MG, UNK
  6. MEROPENEM. [Concomitant]
     Active Substance: MEROPENEM
     Indication: ANTIBIOTIC PROPHYLAXIS
     Dosage: 1000 MG, UNK
     Dates: start: 20170228, end: 20170309
  7. DOXORUBICIN HCL [Suspect]
     Active Substance: DOXORUBICIN HYDROCHLORIDE
     Indication: DIFFUSE LARGE B-CELL LYMPHOMA
     Dosage: 95 MG/M2, DAILY
     Dates: start: 20170222, end: 20170304
  8. LENALIDOMIDE [Suspect]
     Active Substance: LENALIDOMIDE
     Indication: DIFFUSE LARGE B-CELL LYMPHOMA
     Dosage: 15 MG, 1X/DAY
     Route: 048
     Dates: start: 20170222, end: 20170304
  9. VINCRISTINE SULFATE. [Suspect]
     Active Substance: VINCRISTINE SULFATE
     Indication: DIFFUSE LARGE B-CELL LYMPHOMA
     Dosage: 2 MG/M2, CYCLIC (1 IN 21 D)
     Dates: start: 20170222, end: 20170304
  10. CYCLOPHOSPHAMIDE. [Suspect]
     Active Substance: CYCLOPHOSPHAMIDE
     Indication: DIFFUSE LARGE B-CELL LYMPHOMA
     Dosage: 1425 MG/M2, DAILY
     Dates: start: 20170222, end: 20170304
  11. AMIODARONE [Suspect]
     Active Substance: AMIODARONE
     Indication: ATRIAL FIBRILLATION
     Dosage: UNK
     Dates: start: 20170328
  12. DIAZEPAM. [Concomitant]
     Active Substance: DIAZEPAM
     Indication: MUSCLE RELAXANT THERAPY
     Dosage: 10 MG, UNK
     Dates: start: 20170228, end: 20170228
  13. VANCOMYCINE [Concomitant]
     Active Substance: VANCOMYCIN
     Indication: ANTIBIOTIC PROPHYLAXIS
     Dosage: 2 G, UNK
     Route: 042
     Dates: start: 20170304, end: 20170308

REACTIONS (2)
  - Atrial fibrillation [Recovered/Resolved with Sequelae]
  - Respiratory failure [Recovered/Resolved]

NARRATIVE: CASE EVENT DATE: 20170228
